FAERS Safety Report 23178556 (Version 1)
Quarter: 2023Q4

REPORT INFORMATION
  Report Type: Report from Study
  Country: BR (occurrence: BR)
  Receive Date: 20231113
  Receipt Date: 20231113
  Transmission Date: 20240110
  Serious: Yes (Hospitalization)
  Sender: FDA-Public Use
  Company Number: BR-AKCEA THERAPEUTICS-2020IS001610

PATIENT

DRUGS (5)
  1. INOTERSEN [Suspect]
     Active Substance: INOTERSEN
     Indication: Hereditary neuropathic amyloidosis
     Dosage: 300 MG, QW
     Route: 058
     Dates: start: 20161017, end: 20201110
  2. PANTOZOL                           /01263204/ [Concomitant]
     Indication: Gastrooesophageal reflux disease
     Dosage: UNK
     Route: 065
     Dates: start: 20161211
  3. CLOSTEBOL ACETATE W/NEOMYCIN SULFATE [Concomitant]
     Indication: Skin ulcer
     Dosage: UNK
     Route: 065
     Dates: start: 20171210
  4. LOPERAMIDE [Concomitant]
     Active Substance: LOPERAMIDE
     Indication: Constipation
     Dosage: UNK
     Route: 065
     Dates: start: 20161201
  5. MINERALS\VITAMINS [Concomitant]
     Active Substance: MINERALS\VITAMINS
     Indication: Product used for unknown indication
     Route: 065

REACTIONS (2)
  - Vomiting [Recovered/Resolved]
  - Gastrointestinal disorder [Recovered/Resolved]

NARRATIVE: CASE EVENT DATE: 20201001
